FAERS Safety Report 6225887-1 (Version None)
Quarter: 2009Q2

REPORT INFORMATION
  Report Type: 
  Country: None (occurrence: None)
  Receive Date: 20090612
  Receipt Date: 20090504
  Transmission Date: 20091009
  Serious: No
  Sender: FDA-Public Use
  Company Number: US-ABBOTT-09P-163-0571331-00

PATIENT
  Sex: Female
  Weight: 68.1 kg

DRUGS (8)
  1. HUMIRA [Suspect]
     Indication: CROHN'S DISEASE
     Route: 058
     Dates: start: 20090106
  2. ASACOL [Concomitant]
     Indication: DRUG USE FOR UNKNOWN INDICATION
     Route: 048
  3. BENTYL [Concomitant]
     Indication: DRUG USE FOR UNKNOWN INDICATION
     Dosage: 6 IN 1 DAYS, AS NEEDED
     Route: 048
  4. BENAZEPRIL/HCTZ [Concomitant]
     Indication: HYPERTENSION
     Dosage: 20/12.5 MG
     Route: 048
  5. PREDNISONE [Concomitant]
     Indication: DRUG USE FOR UNKNOWN INDICATION
     Route: 048
  6. FOLIC ACID [Concomitant]
     Indication: DRUG USE FOR UNKNOWN INDICATION
     Route: 048
  7. PREMARIN [Concomitant]
     Indication: DRUG USE FOR UNKNOWN INDICATION
     Route: 048
  8. LOMOTIL [Concomitant]
     Indication: DRUG USE FOR UNKNOWN INDICATION
     Dosage: 3 IN 1 DAYS, AS NEEDED
     Route: 048

REACTIONS (2)
  - INJECTION SITE HAEMATOMA [None]
  - INJECTION SITE HAEMORRHAGE [None]
